FAERS Safety Report 6136008-8 (Version None)
Quarter: 2009Q1

REPORT INFORMATION
  Report Type: 
  Country: None (occurrence: None)
  Receive Date: 20090325
  Receipt Date: 20090312
  Transmission Date: 20090719
  Serious: Yes (Other)
  Sender: FDA-Public Use
  Company Number: ALA_00267_2009

PATIENT
  Sex: Female

DRUGS (1)
  1. REGLAN [Suspect]
     Indication: SUPPRESSED LACTATION
     Dosage: 10 MG TID ORAL
     Route: 048
     Dates: start: 20090309, end: 20090310

REACTIONS (5)
  - ANXIETY [None]
  - DRUG EXPOSURE VIA BREAST MILK [None]
  - DYSPNOEA [None]
  - HEMIPARESIS [None]
  - MUSCLE SPASMS [None]
